FAERS Safety Report 4531428-7 (Version None)
Quarter: 2004Q4

REPORT INFORMATION
  Report Type: 
  Country: None (occurrence: None)
  Receive Date: 20041217
  Receipt Date: 20041217
  Transmission Date: 20050328
  Serious: Yes (Hospitalization)
  Sender: FDA-Public Use
  Company Number: None

PATIENT
  Age: 51 Year
  Sex: Female
  Weight: 101.1521 kg

DRUGS (8)
  1. XELODA [Suspect]
     Indication: COLORECTAL CANCER
     Dosage: 3320 MG QD PO
     Route: 048
     Dates: start: 20040517, end: 20040520
  2. OXALIPLATIN [Suspect]
     Dosage: 170 MG IV Q 2 WEEKS
     Route: 042
     Dates: start: 20040517
  3. COMBIVENT [Concomitant]
  4. XANAX [Concomitant]
  5. NEXIUM [Concomitant]
  6. AMBIEN [Concomitant]
  7. PROZAC [Concomitant]
  8. DESYREL [Concomitant]

REACTIONS (3)
  - DEHYDRATION [None]
  - DIARRHOEA [None]
  - INTESTINAL OBSTRUCTION [None]
